FAERS Safety Report 6429089-5 (Version None)
Quarter: 2009Q4

REPORT INFORMATION
  Report Type: 
  Country: None (occurrence: None)
  Receive Date: 20091105
  Receipt Date: 20091028
  Transmission Date: 20100525
  Serious: Yes (Death)
  Sender: FDA-Public Use
  Company Number: AU-BAXTER-2009BH015538

PATIENT
  Age: 82 Year

DRUGS (4)
  1. EXTRANEAL [Suspect]
     Indication: PERITONEAL DIALYSIS
     Route: 033
     Dates: end: 20090921
  2. EXTRANEAL [Suspect]
     Route: 033
     Dates: start: 20050606
  3. DIANEAL [Suspect]
     Indication: PERITONEAL DIALYSIS
     Route: 033
     Dates: end: 20090921
  4. DIANEAL [Suspect]
     Route: 033
     Dates: start: 20050606

REACTIONS (1)
  - DEATH [None]
